FAERS Safety Report 4443234-2 (Version None)
Quarter: 2004Q3

REPORT INFORMATION
  Report Type: 
  Country: None (occurrence: None)
  Receive Date: 20040907
  Receipt Date: 20040907
  Transmission Date: 20050211
  Serious: Yes (Hospitalization, Other)
  Sender: FDA-Public Use
  Company Number: None

PATIENT
  Age: 22 Year
  Sex: Female
  Weight: 52.6173 kg

DRUGS (4)
  1. GEODON [Suspect]
     Indication: ANXIETY
     Dosage: 20 MG ONE DAILY ORAL
     Route: 048
     Dates: start: 20040110, end: 20040225
  2. GEODON [Suspect]
     Indication: DISSOCIATION
     Dosage: 20 MG ONE DAILY ORAL
     Route: 048
     Dates: start: 20040110, end: 20040225
  3. ALLESSE BIRTH CONTROL [Concomitant]
  4. LEXAPRO [Concomitant]

REACTIONS (7)
  - BLOOD INSULIN DECREASED [None]
  - DIABETES MELLITUS [None]
  - ERYTHEMA [None]
  - GASTROINTESTINAL DISORDER [None]
  - INFLAMMATION [None]
  - INSOMNIA [None]
  - WEIGHT INCREASED [None]
